FAERS Safety Report 6432801-2 (Version None)
Quarter: 2009Q4

REPORT INFORMATION
  Report Type: 
  Country: None (occurrence: None)
  Receive Date: 20091109
  Receipt Date: 20091104
  Transmission Date: 20100525
  Serious: Yes (Other)
  Sender: FDA-Public Use
  Company Number: A0814873A

PATIENT
  Sex: Female

DRUGS (2)
  1. TYKERB [Suspect]
     Dosage: 1250MG PER DAY
     Route: 048
     Dates: start: 20091001, end: 20091029
  2. XELODA [Concomitant]
     Route: 065
     Dates: end: 20091029

REACTIONS (5)
  - DRUG INEFFECTIVE [None]
  - NEOPLASM PROGRESSION [None]
  - OEDEMA PERIPHERAL [None]
  - ONYCHOMADESIS [None]
  - SKIN CHAPPED [None]
